FAERS Safety Report 4455411-5 (Version None)
Quarter: 2004Q3

REPORT INFORMATION
  Report Type: 
  Country: None (occurrence: None)
  Receive Date: 20040830
  Receipt Date: 20040419
  Transmission Date: 20050211
  Serious: No
  Sender: FDA-Public Use
  Company Number: 205289

PATIENT
  Age: 37 Year
  Sex: Female
  Weight: 126.1 kg

DRUGS (7)
  1. XOLAIR [Suspect]
     Indication: ASTHMA
     Dosage: SUBCUTANEOUS
     Route: 058
     Dates: start: 20031230, end: 20040210
  2. PREDNISONE [Concomitant]
  3. ADVAIR DISKUS [Concomitant]
  4. SINGULAIR [Concomitant]
  5. IRON (IRON NOS) [Concomitant]
  6. ZANTAC [Concomitant]
  7. HYDROXYZINE [Concomitant]

REACTIONS (1)
  - URTICARIA [None]
